FAERS Safety Report 8390880-X (Version None)
Quarter: 2012Q2

REPORT INFORMATION
  Report Type: 
  Country: None (occurrence: None)
  Receive Date: 20120529
  Receipt Date: 20120522
  Transmission Date: 20120825
  Serious: Yes (Hospitalization)
  Sender: FDA-Public Use
  Company Number: US-BAYER-2012-002413

PATIENT
  Age: 30 Year
  Sex: Female
  Weight: 58 kg

DRUGS (5)
  1. DEXTROAMPHETAMINE [Concomitant]
     Dosage: 20 MG, BID
     Route: 048
  2. YAZ [Suspect]
     Indication: CONTRACEPTION
     Dosage: UNK
     Dates: start: 20070101, end: 20090801
  3. CENTRALLY ACTING SYMPATHOMIMETICS [Concomitant]
     Dosage: 40 MG, QD
     Route: 048
  4. CLINDAMYCIN [Concomitant]
     Dosage: 150 MG, BID
     Route: 048
  5. VYVANSE [Concomitant]
     Dosage: 40 MG, UNK

REACTIONS (9)
  - CHOLECYSTITIS CHRONIC [None]
  - GENERAL PHYSICAL HEALTH DETERIORATION [None]
  - PANCREATITIS [None]
  - EMOTIONAL DISTRESS [None]
  - CHOLELITHIASIS [None]
  - PAIN [None]
  - ABDOMINAL PAIN [None]
  - ANXIETY [None]
  - INJURY [None]
